FAERS Safety Report 11316578 (Version 2)
Quarter: 2015Q3

REPORT INFORMATION
  Report Type: Spontaneous
  Country: US (occurrence: US)
  Receive Date: 20150728
  Receipt Date: 20150819
  Transmission Date: 20151125
  Serious: Yes (Other)
  Sender: FDA-Public Use
  Company Number: US-PFIZER INC-2015249026

PATIENT
  Age: 65 Year
  Sex: Female
  Weight: 52 kg

DRUGS (5)
  1. DUAVEE [Suspect]
     Active Substance: BAZEDOXIFENE ACETATE\ESTROGENS, CONJUGATED
     Indication: NIGHT SWEATS
     Dosage: 1 DF, 1X/DAY
     Route: 048
     Dates: start: 20150602, end: 2015
  2. LORAZEPAM. [Concomitant]
     Active Substance: LORAZEPAM
     Dosage: UNK
  3. DUAVEE [Suspect]
     Active Substance: BAZEDOXIFENE ACETATE\ESTROGENS, CONJUGATED
     Indication: VULVOVAGINAL DRYNESS
  4. PRISTIQ EXTENDED RELEASE [Concomitant]
     Active Substance: DESVENLAFAXINE SUCCINATE
     Dosage: UNK
  5. SOOLANTRA [Concomitant]
     Active Substance: IVERMECTIN
     Dosage: UNK
     Dates: start: 20150602

REACTIONS (8)
  - Thyroid disorder [Unknown]
  - Erythema [Unknown]
  - Skin swelling [Unknown]
  - Pigmentation disorder [Unknown]
  - Eye infection [Not Recovered/Not Resolved]
  - Skin disorder [Unknown]
  - Scab [Unknown]
  - Rash [Recovered/Resolved]
